FAERS Safety Report 7952660-6 (Version None)
Quarter: 2011Q4

REPORT INFORMATION
  Report Type: 
  Country: None (occurrence: None)
  Receive Date: 20111201
  Receipt Date: 20111123
  Transmission Date: 20120403
  Serious: Yes (Other)
  Sender: FDA-Public Use
  Company Number: US-CELGENEUS-163-21880-11113635

PATIENT
  Sex: Male
  Weight: 74.91 kg

DRUGS (8)
  1. METOPROLOL [Concomitant]
     Route: 065
  2. LISINOPRIL [Concomitant]
     Route: 065
  3. HYDROCHLOROTHIAZIDE [Concomitant]
     Route: 065
  4. ZOMETA [Concomitant]
     Route: 065
  5. VITAMIN D [Concomitant]
     Route: 065
  6. OXYCODONE HCL [Concomitant]
     Route: 065
  7. REVLIMID [Suspect]
     Indication: MULTIPLE MYELOMA
     Dosage: 25 MILLIGRAM
     Route: 048
     Dates: start: 20111118
  8. VALTREX [Concomitant]
     Route: 065

REACTIONS (1)
  - SCOTOMA [None]
